FAERS Safety Report 20906398 (Version 1)
Quarter: 2022Q2

REPORT INFORMATION
  Report Type: Spontaneous
  Country: MX (occurrence: None)
  Receive Date: 20220601
  Receipt Date: 20220601
  Transmission Date: 20220720
  Serious: No
  Sender: FDA-Public Use
  Company Number: None

PATIENT
  Age: 46 Year
  Sex: Female
  Weight: 60 kg

DRUGS (4)
  1. MONTELUKAST SODIUM [Suspect]
     Active Substance: MONTELUKAST SODIUM
     Indication: COVID-19
     Dosage: OTHER QUANTITY : 1 TABLET(S);?FREQUENCY : EVERY 12 HOURS;?
     Route: 048
  2. MONTELUKAST SODIUM [Suspect]
     Active Substance: MONTELUKAST SODIUM
     Indication: Traumatic lung injury
  3. SERETIDE SALMETEROL/F;ITOCASPME SPRAY [Concomitant]
  4. SWISH ESSENTIAL OILS [Concomitant]

REACTIONS (12)
  - Aggression [None]
  - Anger [None]
  - Disturbance in attention [None]
  - Depression [None]
  - Somnolence [None]
  - Flat affect [None]
  - Negative thoughts [None]
  - Anxiety [None]
  - Irritability [None]
  - Memory impairment [None]
  - Dysphemia [None]
  - Aphasia [None]
